APPROVED DRUG PRODUCT: ETODOLAC
Active Ingredient: ETODOLAC
Strength: 400MG
Dosage Form/Route: TABLET, EXTENDED RELEASE;ORAL
Application: A075829 | Product #001
Applicant: WATSON LABORATORIES INC FLORIDA
Approved: Nov 30, 2001 | RLD: No | RS: No | Type: DISCN